FAERS Safety Report 4588894-0 (Version None)
Quarter: 2005Q1

REPORT INFORMATION
  Report Type: 
  Country: None (occurrence: None)
  Receive Date: 20050216
  Receipt Date: 20050208
  Transmission Date: 20050727
  Serious: Yes (Other)
  Sender: FDA-Public Use
  Company Number: 2005025068

PATIENT
  Sex: Male
  Weight: 99.7913 kg

DRUGS (8)
  1. NEURONTIN [Suspect]
     Indication: POST HERPETIC NEURALGIA
     Dosage: ORAL
     Route: 048
  2. CARBAMAZEPINE [Suspect]
     Indication: POST HERPETIC NEURALGIA
     Dosage: ORAL
     Route: 048
  3. LAMOTRIGINE [Suspect]
     Indication: POST HERPETIC NEURALGIA
     Dosage: ORAL
     Route: 048
  4. HYDROCHLOROTHIAZIDE [Concomitant]
  5. ATORVASTATIN (ATORVASTATIN) [Concomitant]
  6. AMLODIPINE BESYLATE [Concomitant]
  7. ATENOLOL [Concomitant]
  8. LISINOPRIL [Concomitant]

REACTIONS (5)
  - BALANCE DISORDER [None]
  - DRUG INEFFECTIVE [None]
  - FALL [None]
  - PAIN [None]
  - WALKING AID USER [None]
